FAERS Safety Report 10913366 (Version 2)
Quarter: 2015Q2

REPORT INFORMATION
  Report Type: Spontaneous
  Country: US (occurrence: US)
  Receive Date: 20150313
  Receipt Date: 20150414
  Transmission Date: 20150821
  Serious: Yes (Hospitalization, Other)
  Sender: FDA-Public Use
  Company Number: US-PFIZER INC-2015087348

PATIENT
  Age: 66 Year
  Sex: Male
  Weight: 94 kg

DRUGS (1)
  1. SUTENT [Suspect]
     Active Substance: SUNITINIB MALATE
     Indication: RENAL CANCER
     Dosage: 20 MG, CYCLIC (28 DAYS ON 14 DAYS OFF)
     Dates: end: 20141210

REACTIONS (9)
  - Pulmonary thrombosis [Unknown]
  - Liver injury [Not Recovered/Not Resolved]
  - Renal cancer [Unknown]
  - Renal disorder [Unknown]
  - Pain [Unknown]
  - Dementia [Unknown]
  - Weight decreased [Unknown]
  - Disease progression [Unknown]
  - Pyrexia [Recovered/Resolved]

NARRATIVE: CASE EVENT DATE: 201411
